FAERS Safety Report 4999167-6 (Version None)
Quarter: 2006Q2

REPORT INFORMATION
  Report Type: 
  Country: None (occurrence: None)
  Receive Date: 20060509
  Receipt Date: 20060426
  Transmission Date: 20061013
  Serious: Yes (Other)
  Sender: FDA-Public Use
  Company Number: 2005064290

PATIENT
  Age: 62 Year
  Sex: Female
  Weight: 64.4108 kg

DRUGS (1)
  1. BEXTRA [Suspect]
     Indication: PAIN

REACTIONS (4)
  - ASTHENIA [None]
  - CEREBROVASCULAR ACCIDENT [None]
  - ILL-DEFINED DISORDER [None]
  - MYOCARDIAL INFARCTION [None]
